FAERS Safety Report 23021435 (Version 1)
Quarter: 2023Q4

REPORT INFORMATION
  Report Type: Spontaneous
  Country: US (occurrence: US)
  Receive Date: 20231003
  Receipt Date: 20231003
  Transmission Date: 20240109
  Serious: No
  Sender: FDA-Public Use
  Company Number: US-SA-SAC20230927000488

PATIENT
  Sex: Male

DRUGS (1)
  1. DUPIXENT [Suspect]
     Active Substance: DUPILUMAB
     Indication: Dermatitis atopic
     Dosage: DOSE -300MG FREQUENCY-EVERY 14 DAYS
     Route: 058
     Dates: start: 202004

REACTIONS (2)
  - Skin exfoliation [Unknown]
  - Rash [Unknown]
